FAERS Safety Report 9141074 (Version 1)
Quarter: 2013Q1

REPORT INFORMATION
  Report Type: Spontaneous
  Country: FR (occurrence: FR)
  Receive Date: 20130305
  Receipt Date: 20130305
  Transmission Date: 20140127
  Serious: Yes (Hospitalization, Other)
  Sender: FDA-Public Use
  Company Number: FR-PFIZER INC-2013076386

PATIENT
  Age: 82 Year
  Sex: Male

DRUGS (12)
  1. TRIATEC [Suspect]
     Dosage: 1 DF, 1X/DAY
     Route: 048
  2. DIFFU K [Suspect]
     Dosage: 600 MG, 1X/DAY
     Route: 048
  3. FLAGYL [Concomitant]
     Dosage: UNK
     Dates: start: 20121227
  4. CEFOTAXIME [Concomitant]
     Dosage: UNK
     Dates: start: 20121212, end: 20121227
  5. KARDEGIC [Concomitant]
     Dosage: UNK
  6. TAHOR [Concomitant]
     Dosage: UNK
  7. PREVISCAN [Concomitant]
     Dosage: UNK
  8. LASILIX [Concomitant]
     Dosage: 120 MG, DAILY
     Dates: start: 20121217
  9. MECIR [Concomitant]
     Dosage: UNK
  10. TARDYFERON [Concomitant]
     Dosage: UNK
  11. HEMIGOXINE NATIVELLE [Concomitant]
     Dosage: UNK
  12. CARDENSIEL [Concomitant]
     Dosage: UNK

REACTIONS (8)
  - Renal failure acute [Recovering/Resolving]
  - Hyperkalaemia [Recovering/Resolving]
  - Clostridium difficile colitis [Unknown]
  - Coma [Unknown]
  - Cerebrovascular accident [Unknown]
  - Pneumonia aspiration [Unknown]
  - Left ventricular failure [Unknown]
  - Pleural effusion [Unknown]
